FAERS Safety Report 8549509 (Version 6)
Quarter: 2013Q2

REPORT INFORMATION
  Report Type: Report from Study
  Country: CZ (occurrence: CZ)
  Receive Date: 20120507
  Receipt Date: 20130605
  Transmission Date: 20140414
  Serious: Yes (Other)
  Sender: FDA-Public Use
  Company Number: PHHY2012CZ038034

PATIENT
  Age: 61 Year
  Sex: Female

DRUGS (12)
  1. ZOLEDRONATE [Suspect]
     Indication: METASTASES TO BONE
     Dosage: UNK UKN, UNK
     Route: 042
     Dates: start: 200712
  2. ZOLEDRONATE [Suspect]
     Dosage: 4 MG, TIW
     Dates: start: 20071005
  3. ZOLEDRONATE [Suspect]
     Dosage: 4 MG QMO
     Dates: start: 20071203, end: 20080312
  4. ZOLEDRONATE [Suspect]
     Dosage: 4 MG QMO
     Dates: start: 20110525, end: 20110525
  5. ZOLEDRONATE [Suspect]
     Dosage: 4 MG, QMO
     Dates: start: 20110824, end: 20111116
  6. BISPHOSPHONATES [Concomitant]
     Dosage: UNK UKN, UNK
  7. BONEFOS [Concomitant]
     Dosage: 200 MG, UNK
     Dates: start: 20071015, end: 20071210
  8. BONDRONAT [Concomitant]
     Dosage: 50 MG, UNK
     Dates: start: 20080402, end: 20110618
  9. ARIMIDEX [Concomitant]
     Dosage: UNK UKN, UNK
     Dates: start: 200805, end: 201003
  10. AROMASIN [Concomitant]
     Dosage: UNK UKN, UNK
     Dates: start: 20100407, end: 20100720
  11. PACLITAXEL [Concomitant]
     Dosage: UNK UKN, UNK
     Dates: start: 20110525, end: 201302
  12. FASLODEX [Concomitant]
     Dosage: UNK UKN, UNK
     Dates: start: 20100908, end: 201105

REACTIONS (18)
  - Dysphagia [Unknown]
  - Malignant neoplasm progression [Unknown]
  - Osteonecrosis of jaw [Unknown]
  - Face oedema [Unknown]
  - Toothache [Unknown]
  - Dry mouth [Unknown]
  - Mouth haemorrhage [Unknown]
  - Oral disorder [Unknown]
  - Osteomyelitis [Unknown]
  - Soft tissue infection [Unknown]
  - Dysgeusia [Unknown]
  - Bone pain [Unknown]
  - Abscess [Unknown]
  - Tooth injury [Unknown]
  - Gastritis [Unknown]
  - Malaise [Unknown]
  - Pain [Unknown]
  - Back pain [Not Recovered/Not Resolved]
